FAERS Safety Report 5991861-3 (Version None)
Quarter: 2008Q4

REPORT INFORMATION
  Report Type: 
  Country: None (occurrence: None)
  Receive Date: 20081202
  Receipt Date: 20071026
  Transmission Date: 20090506
  Serious: Yes (Disabling, Other)
  Sender: FDA-Public Use
  Company Number: WAES 0707USA05054

PATIENT
  Age: 77 Year
  Sex: Female

DRUGS (4)
  1. FOSAMAX [Suspect]
     Indication: OSTEOPOROSIS
     Dosage: 70 MG/WKY/PO
     Route: 048
     Dates: start: 20030409, end: 20060519
  2. LIPITOR [Concomitant]
  3. ALPRAZOLAM [Concomitant]
  4. PROPRANOLOL HYDROCHLORIDE [Concomitant]

REACTIONS (7)
  - ANGER [None]
  - ANXIETY [None]
  - CONFUSIONAL STATE [None]
  - DRUG DEPENDENCE [None]
  - MAJOR DEPRESSION [None]
  - OSTEOMYELITIS [None]
  - OSTEONECROSIS [None]
